FAERS Safety Report 18967662 (Version 1)
Quarter: 2021Q1

REPORT INFORMATION
  Report Type: Spontaneous
  Country: US (occurrence: US)
  Receive Date: 20210303
  Receipt Date: 20210303
  Transmission Date: 20210420
  Serious: Yes (Hospitalization)
  Sender: FDA-Public Use
  Company Number: None

PATIENT
  Age: 77 Year
  Sex: Male

DRUGS (13)
  1. ALPHAGAN P 0.15% OPHTH [Concomitant]
  2. PREDNISOLONE AC 1% OPHTH [Concomitant]
  3. ACULAR LS 0.4% OPHTH [Concomitant]
  4. LATANOPROST 0.005% OPHTH [Concomitant]
  5. RESTASIS 0.05% OPHTH [Concomitant]
  6. TOBRAMYCIN 0.3% OPHTH [Concomitant]
  7. H.P. ACTHAR [Suspect]
     Active Substance: CORTICOTROPIN
     Indication: UVEITIS
     Dosage: ?          OTHER FREQUENCY:THREE TIMES A WEEK;?
     Route: 058
     Dates: start: 20201014, end: 20210219
  8. FOLIC ACID 1MG [Concomitant]
     Active Substance: FOLIC ACID
  9. ALPHAGAN P 0.15% OPHTH [Concomitant]
  10. BRIMONIDINE 0.15% OPHTH [Concomitant]
  11. COSOPT OCUMETER PLUS OPHTH [Concomitant]
  12. PREDNISONE 10MG [Concomitant]
     Active Substance: PREDNISONE
  13. MOXIFLOXACIN 0.5% OPHTH [Concomitant]

REACTIONS (1)
  - Pneumonia [None]

NARRATIVE: CASE EVENT DATE: 20210219
